FAERS Safety Report 6121670-6 (Version None)
Quarter: 2009Q1

REPORT INFORMATION
  Report Type: 
  Country: None (occurrence: None)
  Receive Date: 20090317
  Receipt Date: 20090311
  Transmission Date: 20090719
  Serious: Yes (Other)
  Sender: FDA-Public Use
  Company Number: BR-ABBOTT-09P-020-0561818-00

PATIENT
  Sex: Female
  Weight: 66 kg

DRUGS (2)
  1. SIBUTRAMINE [Suspect]
     Indication: WEIGHT CONTROL
     Route: 048
     Dates: start: 20090209, end: 20090305
  2. CENTRUM [Concomitant]
     Indication: VITAMIN SUPPLEMENTATION
     Dosage: 1/2 TABLET DAILY
     Route: 048
     Dates: start: 19990101

REACTIONS (2)
  - CYST [None]
  - DRY EYE [None]
